FAERS Safety Report 24009600 (Version 1)
Quarter: 2024Q2

REPORT INFORMATION
  Report Type: Spontaneous
  Country: CA (occurrence: CA)
  Receive Date: 20240625
  Receipt Date: 20240625
  Transmission Date: 20240716
  Serious: Yes (Life-Threatening, Hospitalization, Other)
  Sender: FDA-Public Use
  Company Number: CA-Vifor (International) Inc.-VIT-2024-03212

PATIENT
  Age: 85 Year
  Sex: Female
  Weight: 62 kg

DRUGS (6)
  1. KORSUVA [Suspect]
     Active Substance: DIFELIKEFALIN ACETATE
     Indication: Uraemic pruritus
     Dosage: (0.5 MCG, 3 IN 1 WK)
     Route: 040
     Dates: start: 20240227, end: 20240305
  2. KORSUVA [Suspect]
     Active Substance: DIFELIKEFALIN ACETATE
     Dosage: (0.125 MCG, 3 IN 1 WK)
     Route: 040
     Dates: start: 20240528, end: 20240601
  3. AMIODARONE [Concomitant]
     Active Substance: AMIODARONE
     Indication: Atrial fibrillation
     Dosage: 200 GM (200 GM, 1 IN 1 D)
     Route: 048
  4. ELIQUIS [Concomitant]
     Active Substance: APIXABAN
     Indication: Atrial fibrillation
     Dosage: 5 GM (2.5 GM, 2 IN 1 D)
     Route: 048
  5. METOPROLOL [Concomitant]
     Active Substance: METOPROLOL
     Indication: Cardiac failure chronic
     Dosage: 50 GM (25 GM, 2 IN 1 D)
     Route: 048
  6. L-ALPHA [Concomitant]
     Indication: Hyperparathyroidism secondary
     Dosage: 0.25 GM (0.25 GM 1 IN 1 D)
     Route: 048

REACTIONS (6)
  - Colitis ischaemic [Recovered/Resolved]
  - Abdominal pain [Unknown]
  - Hypotension [Unknown]
  - Diarrhoea [Unknown]
  - Nausea [Unknown]
  - Vomiting [Unknown]

NARRATIVE: CASE EVENT DATE: 20240302
